FAERS Safety Report 7777214-6 (Version None)
Quarter: 2011Q3

REPORT INFORMATION
  Report Type: 
  Country: None (occurrence: None)
  Receive Date: 20110922
  Receipt Date: 20110913
  Transmission Date: 20111222
  Serious: Yes (Hospitalization)
  Sender: FDA-Public Use
  Company Number: 2011SP043214

PATIENT
  Age: 66 Year
  Sex: Female

DRUGS (12)
  1. CODEINE PHOSPHATE AND ACETAMINOPHEN [Suspect]
     Indication: PRODUCT USED FOR UNKNOWN INDICATION
     Dosage: 1 DF; TID; PO
     Route: 048
     Dates: start: 20110729, end: 20110813
  2. XYZALL (LEVOCETIRIZINE) [Suspect]
     Indication: PRODUCT USED FOR UNKNOWN INDICATION
     Dosage: 5 MG; QD;PO
     Route: 048
     Dates: start: 20110809, end: 20110813
  3. JANUVIA [Concomitant]
  4. IBUPROFEN [Suspect]
     Indication: PRODUCT USED FOR UNKNOWN INDICATION
     Dosage: 400 MG; BID; PO
     Route: 048
     Dates: end: 20110813
  5. PRAVASTATIN [Suspect]
     Indication: PRODUCT USED FOR UNKNOWN INDICATION
     Dosage: 20 MG;QD;PO
     Route: 048
     Dates: end: 20110813
  6. METFORMIN HCL [Concomitant]
  7. TARKA [Concomitant]
  8. GLIMEPIRIDE [Concomitant]
  9. SPIRONOLACTONE [Suspect]
     Indication: PRODUCT USED FOR UNKNOWN INDICATION
     Dosage: 1 DF; QD; PO
     Route: 048
     Dates: start: 20110809, end: 20110813
  10. CATAPRES [Concomitant]
  11. DIPROSONE [Suspect]
     Indication: PRODUCT USED FOR UNKNOWN INDICATION
     Dosage: TOP
     Route: 061
     Dates: start: 20110809, end: 20110813
  12. CYTEAL (HEXAMIDINE, CHLORHEXIDINE, CHLOROCRESOL) (CYTEAL /00934001/) [Suspect]
     Indication: PRODUCT USED FOR UNKNOWN INDICATION
     Dosage: ;TOP
     Route: 061
     Dates: start: 20110809, end: 20110813

REACTIONS (6)
  - URTICARIA [None]
  - PRURITUS GENERALISED [None]
  - OEDEMA PERIPHERAL [None]
  - PAIN IN EXTREMITY [None]
  - ERYTHEMA [None]
  - ERYSIPELAS [None]
